FAERS Safety Report 8826849 (Version 1)
Quarter: 2012Q4

REPORT INFORMATION
  Report Type: Report from Study
  Country: CZ (occurrence: CZ)
  Receive Date: 20121005
  Receipt Date: 20121005
  Transmission Date: 20130627
  Serious: Yes (Hospitalization)
  Sender: FDA-Public Use
  Company Number: CZ-PFIZER INC-2011018454

PATIENT
  Age: 65 Year
  Sex: Female
  Weight: 45 kg

DRUGS (2)
  1. AXITINIB [Suspect]
     Indication: METASTATIC RENAL CELL CARCINOMA
     Dosage: 2 mg, 2x/day, post lead in period
     Route: 048
     Dates: start: 20100616, end: 20110128
  2. LETROX [Concomitant]
     Indication: HYPOTHYROIDISM

REACTIONS (1)
  - Hypokalaemia [Recovered/Resolved]
